FAERS Safety Report 22220289 (Version 1)
Quarter: 2023Q2

REPORT INFORMATION
  Report Type: Spontaneous
  Country: ES (occurrence: ES)
  Receive Date: 20230417
  Receipt Date: 20230417
  Transmission Date: 20230722
  Serious: Yes (Other)
  Sender: FDA-Public Use
  Company Number: None

PATIENT
  Age: 67 Year
  Sex: Female

DRUGS (7)
  1. CYMBALTA [Suspect]
     Active Substance: DULOXETINE HYDROCHLORIDE
     Indication: Pain
     Dosage: 60 MG, DAILY
     Route: 048
     Dates: start: 20200101
  2. FENTANYL [Suspect]
     Active Substance: FENTANYL
     Indication: Pain
     Dosage: 1 DOSAGE FORM, EVERY 72H
     Route: 062
     Dates: start: 20150101
  3. LIORESAL [Suspect]
     Active Substance: BACLOFEN
     Indication: Muscle spasticity
     Dosage: 10 MG, TID
     Route: 048
     Dates: start: 20150101
  4. ESOMEPRAZOLE SODIUM [Suspect]
     Active Substance: ESOMEPRAZOLE SODIUM
     Indication: Prophylaxis
     Dosage: 40 MG, BID
     Route: 048
     Dates: start: 20150101
  5. GABAPENTIN [Suspect]
     Active Substance: GABAPENTIN
     Indication: Pain
     Dosage: 600 MG, BID
     Route: 048
     Dates: start: 20200101
  6. PARACETAMOL KERN PHARMA [Concomitant]
     Indication: Pain
     Dosage: 1 G, TID
     Route: 048
     Dates: start: 20150101
  7. METAMIZOLE [Concomitant]
     Active Substance: METAMIZOLE
     Indication: Pain
     Dosage: 575 MG, BID
     Route: 048
     Dates: start: 20150101

REACTIONS (2)
  - Mucosal dryness [Not Recovered/Not Resolved]
  - Dry mouth [Not Recovered/Not Resolved]

NARRATIVE: CASE EVENT DATE: 20220101
